FAERS Safety Report 25656475 (Version 1)
Quarter: 2025Q3

REPORT INFORMATION
  Report Type: Spontaneous
  Country: GB (occurrence: GB)
  Receive Date: 20250807
  Receipt Date: 20250807
  Transmission Date: 20251020
  Serious: Yes (Hospitalization, Other)
  Sender: CALLIDITAS THERAPEUTICS AB
  Company Number: None

PATIENT
  Age: 35 Year
  Sex: Male
  Weight: 157 kg

DRUGS (4)
  1. BUDESONIDE [Suspect]
     Active Substance: BUDESONIDE
     Indication: Adverse drug reaction
     Dosage: 16MG EVERY MORNING ()
     Route: 048
     Dates: start: 20240808, end: 20250617
  2. AMLODIPINE [Concomitant]
     Active Substance: AMLODIPINE BESYLATE
     Indication: Hypertension
     Dates: start: 20250115
  3. FUROSEMIDE [Concomitant]
     Active Substance: FUROSEMIDE
     Indication: Oedema
     Dates: start: 20250115
  4. ATORVASTATIN [Concomitant]
     Active Substance: ATORVASTATIN
     Indication: Adverse drug reaction
     Dates: start: 20250321

REACTIONS (5)
  - Weight increased [Recovering/Resolving]
  - Acne [Recovering/Resolving]
  - Alopecia [Recovering/Resolving]
  - Glucose tolerance impaired [Recovering/Resolving]
  - Orthostatic hypotension [Recovered/Resolved]

NARRATIVE: CASE EVENT DATE: 20250416
